FAERS Safety Report 9458346 (Version 4)
Quarter: 2014Q3

REPORT INFORMATION
  Report Type: Spontaneous
  Country: US (occurrence: US)
  Receive Date: 20130814
  Receipt Date: 20140911
  Transmission Date: 20150326
  Serious: Yes (Congenital Anomaly, Other)
  Sender: FDA-Public Use
  Company Number: US-PFIZER INC-2013235625

PATIENT
  Sex: Male
  Weight: 3.37 kg

DRUGS (8)
  1. LEVOTHYROXINE [Concomitant]
     Active Substance: LEVOTHYROXINE
     Dosage: 125 MG, 1X/DAY
     Route: 064
     Dates: start: 20060329
  2. PRENATE ELITE [Concomitant]
     Active Substance: .ALPHA.-TOCOPHEROL\ASCORBIC ACID\BIOTIN\CALCIUM CARBONATE\CHOLECALCIFEROL\COPPER\CYANOCOBALAMIN\FERROUS FUMARATE\FOLIC ACID\IODINE\MAGNESIUM\NIACINAMIDE\PANTOTHENIC ACID\PYRIDOXINE\RIBOFLAVIN\THIAMINE\VITAMIN A\ZINC
     Dosage: UNK, ONCE DAILY
     Route: 064
     Dates: start: 20060329
  3. LOVENOX [Concomitant]
     Active Substance: ENOXAPARIN SODIUM
     Dosage: 80 MG, 1X/DAY
     Route: 064
     Dates: start: 20060329
  4. SYNTHROID [Concomitant]
     Active Substance: LEVOTHYROXINE SODIUM
     Dosage: 125 MG, 1X/DAY
     Route: 064
     Dates: start: 20060329
  5. WARFARIN [Concomitant]
     Active Substance: WARFARIN
     Dosage: UNK
     Route: 064
  6. EFFEXOR [Suspect]
     Active Substance: VENLAFAXINE HYDROCHLORIDE
     Dosage: UNK
     Route: 064
     Dates: start: 20050110, end: 20050810
  7. CALCIUM [Concomitant]
     Active Substance: CALCIUM
     Dosage: UNK
     Route: 064
     Dates: start: 20060329
  8. PRENATAL VITAMINS [Concomitant]
     Active Substance: VITAMINS
     Dosage: UNK
     Route: 064

REACTIONS (8)
  - Arnold-Chiari malformation [Unknown]
  - Developmental hip dysplasia [Unknown]
  - Neurogenic bowel [Unknown]
  - Neurogenic bladder [Unknown]
  - Congenital hydrocephalus [Unknown]
  - Congenital anomaly [Unknown]
  - Meningomyelocele [Unknown]
  - Maternal exposure during pregnancy [Unknown]

NARRATIVE: CASE EVENT DATE: 20060611
